FAERS Safety Report 13124615 (Version 3)
Quarter: 2018Q1

REPORT INFORMATION
  Report Type: Spontaneous
  Country: US (occurrence: US)
  Receive Date: 20170118
  Receipt Date: 20180201
  Transmission Date: 20180508
  Serious: Yes (Hospitalization, Other)
  Sender: FDA-Public Use
  Company Number: US-AUROBINDO-AUR-APL-2017-00995

PATIENT
  Age: 31 Year
  Sex: Male

DRUGS (4)
  1. CLOZAPINE. [Suspect]
     Active Substance: CLOZAPINE
     Indication: PRODUCT USED FOR UNKNOWN INDICATION
     Dosage: 400 MG, DAILY
     Route: 065
  2. OLANZAPINE. [Suspect]
     Active Substance: OLANZAPINE
     Indication: PRODUCT USED FOR UNKNOWN INDICATION
     Dosage: 15 MG QHS
     Route: 065
  3. CLOZAPINE. [Suspect]
     Active Substance: CLOZAPINE
     Indication: SCHIZOPHRENIA
     Dosage: 200 MG, DAILY
     Route: 065
  4. OLANZAPINE. [Suspect]
     Active Substance: OLANZAPINE
     Indication: SCHIZOPHRENIA
     Dosage: EVERY BEDTIME.

REACTIONS (10)
  - Hypokinesia [Unknown]
  - Electrocardiogram QT prolonged [Unknown]
  - Ejection fraction decreased [Unknown]
  - Ventricular tachycardia [Unknown]
  - Unresponsive to stimuli [Unknown]
  - Cardiac arrest [Unknown]
  - Pulse absent [Unknown]
  - Loss of consciousness [Unknown]
  - Chest pain [Unknown]
  - Palpitations [Unknown]
